FAERS Safety Report 4367494-1 (Version None)
Quarter: 2004Q2

REPORT INFORMATION
  Report Type: 
  Country: None (occurrence: None)
  Receive Date: 20040601
  Receipt Date: 20040521
  Transmission Date: 20050107
  Serious: Yes (Hospitalization)
  Sender: FDA-Public Use
  Company Number: JP-BRISTOL-MYERS SQUIBB COMPANY-12592598

PATIENT
  Age: 61 Year
  Sex: Male
  Weight: 58 kg

DRUGS (9)
  1. PACLITAXEL [Suspect]
     Indication: LARYNGEAL CANCER
     Dosage: DURATION OF TREATMENT: 6-7 WEEKS
     Route: 042
     Dates: start: 20040513, end: 20040513
  2. THYRADIN S [Concomitant]
     Route: 048
     Dates: start: 20040209
  3. ALFAROL [Concomitant]
     Route: 048
     Dates: start: 20040209
  4. ASPARA [Concomitant]
     Route: 048
     Dates: start: 20040217
  5. GASTER [Concomitant]
     Dosage: ORAL/IV
     Dates: start: 20040224
  6. URSO [Concomitant]
     Route: 048
     Dates: start: 20031003, end: 20040517
  7. VOLTAREN [Concomitant]
     Dosage: 25-50 MG
     Route: 054
     Dates: start: 20030712
  8. ISODINE [Concomitant]
     Dosage: GARGLE
     Route: 048
     Dates: start: 20040429
  9. ADFEED [Concomitant]
     Route: 061
     Dates: start: 20040429

REACTIONS (1)
  - ARTERIAL RUPTURE [None]
